FAERS Safety Report 5675076-4 (Version None)
Quarter: 2008Q1

REPORT INFORMATION
  Report Type: 
  Country: None (occurrence: None)
  Receive Date: 20080320
  Receipt Date: 20080317
  Transmission Date: 20080703
  Serious: Yes (Other)
  Sender: FDA-Public Use
  Company Number: US-BRISTOL-MYERS SQUIBB COMPANY-14118202

PATIENT
  Age: 54 Year
  Sex: Male
  Weight: 116 kg

DRUGS (4)
  1. CISPLATIN [Suspect]
     Indication: SQUAMOUS CELL CARCINOMA
     Dosage: FIRST COURSE WAS ON 31-JAN-2008.
     Dates: start: 20080221, end: 20080221
  2. RADIATION THERAPY [Suspect]
     Indication: SQUAMOUS CELL CARCINOMA
     Dosage: 1 DOSAGEFORM = 6000 CGY. NUMBER OF FRACTIONS 30, NUMBER OF ELASPSED DAYS 35
     Dates: start: 20080206, end: 20080206
  3. DARBEPOETIN ALFA [Concomitant]
  4. FILGRASTIM [Concomitant]

REACTIONS (1)
  - NEUTROPHIL COUNT ABNORMAL [None]
